FAERS Safety Report 7990541 (Version 3)
Quarter: 2016Q1

REPORT INFORMATION
  Report Type: Spontaneous
  Country: US (occurrence: US)
  Receive Date: 20110614
  Receipt Date: 20160105
  Transmission Date: 20160526
  Serious: Yes (Hospitalization, Other)
  Sender: FDA-Public Use
  Company Number: US-BAYER-2011-049528

PATIENT
  Age: 19 Year
  Sex: Female
  Weight: 65 kg

DRUGS (8)
  1. FLUCONAZOLE. [Concomitant]
     Active Substance: FLUCONAZOLE
     Dosage: 150 MG, UNK
     Route: 048
     Dates: start: 20090529
  2. MACROBID [Concomitant]
     Active Substance: NITROFURANTOIN\NITROFURANTOIN MONOHYDRATE
     Dosage: UNK
     Dates: start: 20090529
  3. AMOXICILLIN. [Concomitant]
     Active Substance: AMOXICILLIN
     Dosage: 500 MG, UNK
     Route: 048
     Dates: start: 20090629
  4. YAZ [Suspect]
     Active Substance: DROSPIRENONE\ETHINYL ESTRADIOL
     Indication: CONTRACEPTION
     Dosage: 1 DF, QD
     Route: 048
     Dates: start: 20090319, end: 20090714
  5. TYLENOL [Concomitant]
     Active Substance: ACETAMINOPHEN
  6. ALDARA [Concomitant]
     Active Substance: IMIQUIMOD
     Dosage: UNK
     Route: 061
     Dates: start: 20090412
  7. NITROFURANTOIN. [Concomitant]
     Active Substance: NITROFURANTOIN
     Dosage: 100 MG, UNK
     Route: 048
     Dates: start: 20090529, end: 20090606
  8. LOVENOX [Concomitant]
     Active Substance: ENOXAPARIN SODIUM

REACTIONS (15)
  - Pain [None]
  - Dizziness [None]
  - Balance disorder [None]
  - Sexual dysfunction [None]
  - Cerebral infarction [None]
  - Speech disorder [None]
  - Emotional distress [None]
  - Mobility decreased [None]
  - Gait disturbance [None]
  - Anxiety [None]
  - Pain of skin [None]
  - Cerebrovascular accident [None]
  - Reading disorder [None]
  - Facial paralysis [None]
  - Aphasia [None]

NARRATIVE: CASE EVENT DATE: 20090714
